FAERS Safety Report 9471901 (Version 3)
Quarter: 2013Q3

REPORT INFORMATION
  Report Type: Spontaneous
  Country: US (occurrence: US)
  Receive Date: 20130823
  Receipt Date: 20130827
  Transmission Date: 20140515
  Serious: Yes (Other)
  Sender: FDA-Public Use
  Company Number: US-ROCHE-1256436

PATIENT
  Sex: Male
  Weight: 54.93 kg

DRUGS (5)
  1. XOLAIR [Suspect]
     Indication: ASTHMA
     Route: 058
     Dates: start: 2012, end: 20130730
  2. DESONIDE [Concomitant]
     Indication: ECZEMA
     Route: 061
  3. LORATADINE [Concomitant]
     Indication: HYPERSENSITIVITY
     Dosage: 10
     Route: 048
  4. MONTELUKAST [Concomitant]
     Indication: ASTHMA
     Route: 048
  5. PROAIR (UNITED STATES) [Concomitant]
     Indication: ASTHMA
     Dosage: 2 PUFF INHEALED
     Route: 050

REACTIONS (3)
  - Rash generalised [Unknown]
  - Eczema [Not Recovered/Not Resolved]
  - Vasculitis [Not Recovered/Not Resolved]
